FAERS Safety Report 9786498 (Version 5)
Quarter: 2014Q4

REPORT INFORMATION
  Report Type: Spontaneous
  Country: US (occurrence: US)
  Receive Date: 20131227
  Receipt Date: 20141103
  Transmission Date: 20150529
  Serious: Yes (Hospitalization, Other)
  Sender: FDA-Public Use
  Company Number: US-009507513-1312USA009129

PATIENT
  Sex: Female

DRUGS (3)
  1. FOSAMAX [Suspect]
     Active Substance: ALENDRONATE SODIUM
     Dosage: 70 MG, QW
     Route: 048
     Dates: start: 200102, end: 200803
  2. ALENDRONATE SODIUM. [Suspect]
     Active Substance: ALENDRONATE SODIUM
     Indication: OSTEOPOROSIS
     Dosage: 70 MG, QW
     Route: 048
     Dates: start: 200803, end: 201011
  3. FOSAMAX [Suspect]
     Active Substance: ALENDRONATE SODIUM
     Indication: OSTEOPOROSIS
     Dosage: 10 MG, UNK
     Route: 048
     Dates: start: 199510, end: 200102

REACTIONS (8)
  - Femur fracture [Unknown]
  - Wrist fracture [Unknown]
  - Hyperparathyroidism [Unknown]
  - Supraventricular tachycardia [Unknown]
  - Femur fracture [Unknown]
  - Colitis [Unknown]
  - Calcium deficiency [Unknown]
  - Intramedullary rod insertion [Unknown]

NARRATIVE: CASE EVENT DATE: 20100717
